FAERS Safety Report 4318801-7 (Version None)
Quarter: 2004Q1

REPORT INFORMATION
  Report Type: 
  Country: None (occurrence: None)
  Receive Date: 20040318
  Receipt Date: 20040305
  Transmission Date: 20041129
  Serious: Yes (Life-Threatening, Hospitalization)
  Sender: FDA-Public Use
  Company Number: IT-GLAXOSMITHKLINE-B0326137A

PATIENT
  Age: 92 Year
  Sex: Female

DRUGS (5)
  1. LANOXIN [Suspect]
     Indication: ATRIAL FIBRILLATION
     Dosage: .13MG PER DAY
     Route: 048
     Dates: start: 20011213, end: 20030131
  2. ESOMEPRAZOLE [Concomitant]
     Route: 048
  3. LYSINE ACETYLSALICYLATE [Concomitant]
     Route: 048
  4. PROPAFENONE HYDROCHLORIDE [Concomitant]
     Indication: ATRIAL FIBRILLATION
     Dosage: 150MG TWICE PER DAY
     Dates: start: 20011213, end: 20030131
  5. TELMISARTAN [Concomitant]
     Route: 048

REACTIONS (3)
  - BRADYCARDIA [None]
  - BRAIN DAMAGE [None]
  - CARDIAC ARREST [None]
